FAERS Safety Report 13003944 (Version 1)
Quarter: 2016Q4

REPORT INFORMATION
  Report Type: Spontaneous
  Country: SA (occurrence: SA)
  Receive Date: 20161206
  Receipt Date: 20161206
  Transmission Date: 20170207
  Serious: Yes (Other)
  Sender: FDA-Public Use
  Company Number: SA-BAUSCH-BL-2016-030435

PATIENT
  Age: 47 Year
  Sex: Male

DRUGS (2)
  1. BROFIX OPHTHALMIC SOLUTION 0.09 % W/V [Suspect]
     Active Substance: BROMFENAC SODIUM
     Indication: EYE OPERATION
     Route: 047
     Dates: end: 20161124
  2. PRED FORTE [Concomitant]
     Active Substance: PREDNISOLONE ACETATE
     Indication: PRODUCT USED FOR UNKNOWN INDICATION

REACTIONS (5)
  - Dry eye [Unknown]
  - Eye pain [Unknown]
  - Eyelid disorder [Unknown]
  - Ocular hyperaemia [Unknown]
  - Eye disorder [Unknown]
